FAERS Safety Report 23994173 (Version 1)
Quarter: 2024Q2

REPORT INFORMATION
  Report Type: Spontaneous
  Country: US (occurrence: US)
  Receive Date: 20240620
  Receipt Date: 20240620
  Transmission Date: 20240715
  Serious: Yes (Other)
  Sender: FDA-Public Use
  Company Number: US-GLAXOSMITHKLINE-US2024071928

PATIENT
  Age: 54 Year
  Sex: Female

DRUGS (5)
  1. BENLYSTA [Suspect]
     Active Substance: BELIMUMAB
     Indication: Systemic lupus erythematosus
     Dosage: UNK
     Dates: start: 20240604, end: 20240604
  2. HYDROXYCHLOROQUINE [Concomitant]
     Active Substance: HYDROXYCHLOROQUINE
     Indication: Systemic lupus erythematosus
     Dosage: UNK
     Dates: start: 20231121
  3. PREDNISONE [Concomitant]
     Active Substance: PREDNISONE
     Indication: Anaphylactic shock
     Dosage: UNK
     Dates: start: 20240606
  4. PEPCID [Concomitant]
     Active Substance: FAMOTIDINE
     Indication: Anaphylactic shock
     Dosage: UNK
     Dates: start: 20240606
  5. ATARAX [Concomitant]
     Active Substance: HYDROXYZINE HYDROCHLORIDE
     Indication: Anaphylactic shock
     Dosage: UNK
     Dates: start: 20240606

REACTIONS (3)
  - Eye pruritus [Not Recovered/Not Resolved]
  - Myalgia [Unknown]
  - Arthralgia [Unknown]

NARRATIVE: CASE EVENT DATE: 20240604
